FAERS Safety Report 23187347 (Version 2)
Quarter: 2023Q4

REPORT INFORMATION
  Report Type: Other
  Country: ES (occurrence: ES)
  Receive Date: 20231115
  Receipt Date: 20231117
  Transmission Date: 20240110
  Serious: Yes (Other)
  Sender: FDA-Public Use
  Company Number: None

PATIENT
  Age: 70 Year
  Sex: Male

DRUGS (13)
  1. VESICARE [Suspect]
     Active Substance: SOLIFENACIN SUCCINATE
     Indication: Urinary incontinence
     Dosage: 5 MG, UNKNOWN FREQ. (BREAKFAST)
     Route: 048
     Dates: start: 20230721, end: 20231010
  2. CONDROSAN [Concomitant]
     Indication: Osteoarthritis
     Dosage: 800 MG, UNKNOWN FREQ. (BREAKFAST)
     Route: 048
     Dates: start: 20211005
  3. Arrox [Concomitant]
     Indication: Type 2 diabetes mellitus
     Dosage: 20 MG, UNKNOWN FREQ. (DINNER)
     Route: 048
     Dates: start: 20221130
  4. XIGDUO XR [Concomitant]
     Active Substance: DAPAGLIFLOZIN PROPANEDIOL\METFORMIN HYDROCHLORIDE
     Indication: Diabetic nephropathy
     Route: 048
     Dates: start: 20190130
  5. ASPIRIN [Concomitant]
     Active Substance: ASPIRIN
     Indication: Type 2 diabetes mellitus
     Dosage: 100 MG, UNKNOWN FREQ. (BREAKFAST)
     Route: 048
     Dates: start: 20141007
  6. Seffalair spiromax [Concomitant]
     Indication: Asthma
     Dosage: UNK (1 PUFF), EVERY 12 HOURS
     Route: 050
     Dates: start: 20220802
  7. TOUJEO [Concomitant]
     Active Substance: INSULIN GLARGINE
     Indication: Diabetic nephropathy
     Dosage: 38 IU, ONCE DAILY (24 HRS)
     Route: 058
     Dates: start: 20191205
  8. FENOFIBRATE [Concomitant]
     Active Substance: FENOFIBRATE
     Indication: Diabetic nephropathy
     Dosage: 145 MG, UNKNOWN FREQ. (DINNER)
     Route: 048
     Dates: start: 20210503
  9. ACETAMINOPHEN [Concomitant]
     Active Substance: ACETAMINOPHEN
     Indication: Intervertebral disc displacement
     Dosage: 1 DF, UNKNOWN FREQ.(BREAFAST-LUNCH DINNER)
     Route: 048
     Dates: start: 20230911
  10. BISOPROLOL [Concomitant]
     Active Substance: BISOPROLOL\BISOPROLOL FUMARATE
     Indication: Essential hypertension
     Dosage: 2.5 MG, UNKNOWN FREQ. (BREAKFAST)
     Route: 048
     Dates: start: 20201210
  11. NOVORAPID [Concomitant]
     Active Substance: INSULIN ASPART
     Indication: Diabetic nephropathy
     Dosage: 30 IU, ONCE DAILY (PER 24 HRS)
     Route: 058
     Dates: start: 20211210
  12. ACETAMINOPHEN\ASCORBIC ACID\CODEINE [Concomitant]
     Active Substance: ACETAMINOPHEN\ASCORBIC ACID\CODEINE
     Indication: Viral infection
     Dosage: UNK UNK, UNKNOWN FREQ. (1 POUCH, BREAKFAST-LUNCH-DINNER)
     Route: 048
     Dates: start: 20231010, end: 20231015
  13. DAFIRO HCT [Concomitant]
     Active Substance: AMLODIPINE\HYDROCHLOROTHIAZIDE\VALSARTAN
     Indication: Essential hypertension
     Dosage: 1 DF, UNKNOWN FREQ. (PER DINNER)
     Route: 048
     Dates: start: 20180306

REACTIONS (1)
  - Diarrhoea [Recovering/Resolving]

NARRATIVE: CASE EVENT DATE: 20230801
